FAERS Safety Report 4906871-4 (Version None)
Quarter: 2006Q1

REPORT INFORMATION
  Report Type: 
  Country: None (occurrence: None)
  Receive Date: 20060207
  Receipt Date: 20060202
  Transmission Date: 20060701
  Serious: Yes (Hospitalization)
  Sender: FDA-Public Use
  Company Number: 200610313GDS

PATIENT
  Age: 49 Year

DRUGS (3)
  1. ASPIRIN [Suspect]
     Indication: GASTROENTERITIS
     Dosage: 2 G, TOTAL DAILY , ORAL
     Route: 048
     Dates: start: 20060101, end: 20060108
  2. FUROSEMIDE [Concomitant]
  3. DOXYCYCLINE [Concomitant]

REACTIONS (14)
  - ANAEMIA [None]
  - ELECTROCARDIOGRAM ST SEGMENT DEPRESSION [None]
  - ELECTROCARDIOGRAM T WAVE INVERSION [None]
  - EROSIVE DUODENITIS [None]
  - GASTRIC ULCER [None]
  - GASTRODUODENITIS [None]
  - GASTROENTERITIS [None]
  - HELICOBACTER INFECTION [None]
  - HYPERTENSION [None]
  - HYPOCHROMIC ANAEMIA [None]
  - TROPONIN INCREASED [None]
  - TROPONIN T INCREASED [None]
  - UPPER GASTROINTESTINAL HAEMORRHAGE [None]
  - VENTRICULAR HYPERTROPHY [None]
